FAERS Safety Report 9457441 (Version 1)
Quarter: 2013Q3

REPORT INFORMATION
  Report Type: Spontaneous
  Country: US (occurrence: US)
  Receive Date: 20130814
  Receipt Date: 20130814
  Transmission Date: 20140515
  Serious: Yes (Hospitalization)
  Sender: FDA-Public Use
  Company Number: US-JNJFOC-20130802462

PATIENT
  Age: 84 Year
  Sex: Female

DRUGS (1)
  1. XARELTO [Suspect]
     Indication: PRODUCT USED FOR UNKNOWN INDICATION
     Route: 048
     Dates: end: 20130711

REACTIONS (4)
  - Gastrointestinal haemorrhage [Recovered/Resolved]
  - Confusional state [Recovering/Resolving]
  - Arteriovenous malformation [Unknown]
  - Anxiety [Recovering/Resolving]
